FAERS Safety Report 19410791 (Version 1)
Quarter: 2021Q2

REPORT INFORMATION
  Report Type: Spontaneous
  Country: US (occurrence: US)
  Receive Date: 20210611
  Receipt Date: 20210611
  Transmission Date: 20210717
  Serious: Yes (Other)
  Sender: FDA-Public Use
  Company Number: None

PATIENT
  Age: 65 Year
  Sex: Male

DRUGS (1)
  1. CAPECITABINE 500MG [Suspect]
     Active Substance: CAPECITABINE
     Indication: GASTRIC CANCER
     Route: 048

REACTIONS (3)
  - Gait disturbance [None]
  - Palmar-plantar erythrodysaesthesia syndrome [None]
  - Skin fissures [None]

NARRATIVE: CASE EVENT DATE: 20210611
